FAERS Safety Report 9177927 (Version 3)
Quarter: 2014Q1

REPORT INFORMATION
  Report Type: Report from Study
  Country: AU (occurrence: AU)
  Receive Date: 20130321
  Receipt Date: 20140318
  Transmission Date: 20141002
  Serious: Yes (Other)
  Sender: FDA-Public Use
  Company Number: AU-ROCHE-1204804

PATIENT
  Sex: Female

DRUGS (3)
  1. ACTEMRA [Suspect]
     Indication: RHEUMATOID ARTHRITIS
     Route: 042
     Dates: start: 20110324
  2. WARFARIN [Concomitant]
     Route: 065
  3. FLU INJECTION [Concomitant]
     Route: 065
     Dates: start: 20140206, end: 20140206

REACTIONS (3)
  - Aortic valve incompetence [Unknown]
  - Fatigue [Unknown]
  - Headache [Unknown]
